FAERS Safety Report 6786913-4 (Version None)
Quarter: 2010Q2

REPORT INFORMATION
  Report Type: 
  Country: None (occurrence: None)
  Receive Date: 20100623
  Receipt Date: 20100514
  Transmission Date: 20101027
  Serious: Yes (Death)
  Sender: FDA-Public Use
  Company Number: US-BAXTER-2010BH007384

PATIENT
  Age: 58 Year
  Sex: Male

DRUGS (1)
  1. HEPARIN SODIUM [Suspect]
     Indication: DIALYSIS
     Route: 042
     Dates: start: 20070905, end: 20080313

REACTIONS (5)
  - ARRHYTHMIA [None]
  - CARDIAC FAILURE CONGESTIVE [None]
  - FEELING COLD [None]
  - FOCAL SEGMENTAL GLOMERULOSCLEROSIS [None]
  - RENAL FAILURE CHRONIC [None]
